FAERS Safety Report 4541986-4 (Version None)
Quarter: 2004Q4

REPORT INFORMATION
  Report Type: 
  Country: None (occurrence: None)
  Receive Date: 20041227
  Receipt Date: 20041216
  Transmission Date: 20050328
  Serious: Yes (Hospitalization)
  Sender: FDA-Public Use
  Company Number: 2004115620

PATIENT
  Age: 49 Year
  Sex: Male

DRUGS (1)
  1. RANITIDINE [Suspect]
     Indication: ABDOMINAL PAIN UPPER
     Dosage: ORAL
     Route: 048

REACTIONS (10)
  - ABDOMINAL PAIN [None]
  - ABDOMINAL TENDERNESS [None]
  - BACTERIA STOOL IDENTIFIED [None]
  - BLOOD ALBUMIN DECREASED [None]
  - BLOOD MAGNESIUM DECREASED [None]
  - CULTURE STOOL POSITIVE [None]
  - DRUG SCREEN POSITIVE [None]
  - FAECES DISCOLOURED [None]
  - GIARDIASIS [None]
  - WEIGHT DECREASED [None]
